FAERS Safety Report 18255911 (Version 2)
Quarter: 2020Q4

REPORT INFORMATION
  Report Type: Spontaneous
  Country: US (occurrence: US)
  Receive Date: 20200911
  Receipt Date: 20201102
  Transmission Date: 20210113
  Serious: No
  Sender: FDA-Public Use
  Company Number: US-ASTRAZENECA-2020SF13968

PATIENT
  Sex: Female

DRUGS (2)
  1. SYMBICORT [Suspect]
     Active Substance: BUDESONIDE\FORMOTEROL FUMARATE DIHYDRATE
     Indication: ASTHMA
     Dosage: 80/4.5 UG, 2 PUFFS, TWO TIMES A DAY
     Route: 048
  2. SYMBICORT [Suspect]
     Active Substance: BUDESONIDE\FORMOTEROL FUMARATE DIHYDRATE
     Indication: CHRONIC OBSTRUCTIVE PULMONARY DISEASE
     Dosage: 80/4.5 UG, 2 PUFFS, TWO TIMES A DAY
     Route: 048

REACTIONS (5)
  - Product taste abnormal [Unknown]
  - Chronic obstructive pulmonary disease [Not Recovered/Not Resolved]
  - Device issue [Unknown]
  - Product odour abnormal [Unknown]
  - Wheezing [Recovered/Resolved]
